FAERS Safety Report 6201592-2 (Version None)
Quarter: 2009Q2

REPORT INFORMATION
  Report Type: 
  Country: None (occurrence: None)
  Receive Date: 20090513
  Receipt Date: 20090504
  Transmission Date: 20091009
  Serious: Yes (Hospitalization)
  Sender: FDA-Public Use
  Company Number: AEUSA200900124

PATIENT
  Age: 54 Year
  Sex: Female
  Weight: 102.0593 kg

DRUGS (6)
  1. PROLASTIN [Suspect]
     Indication: ALPHA-1 ANTI-TRYPSIN DEFICIENCY
     Dosage: 125 MG; QOW, IV
     Route: 042
     Dates: start: 20090301
  2. SYMBICORT [Concomitant]
  3. VITAMIN B12 NOS [Concomitant]
  4. VITAMIN D / 00318501/ [Concomitant]
  5. PROZAC [Concomitant]
  6. SYNTHROID [Concomitant]

REACTIONS (7)
  - ABDOMINAL DISTENSION [None]
  - BLOOD BILIRUBIN INCREASED [None]
  - DIARRHOEA [None]
  - DIVERTICULITIS [None]
  - DYSPEPSIA [None]
  - PLATELET COUNT DECREASED [None]
  - PYREXIA [None]
